FAERS Safety Report 10578261 (Version 1)
Quarter: 2014Q4

REPORT INFORMATION
  Report Type: Spontaneous
  Country: US (occurrence: None)
  Receive Date: 20141111
  Receipt Date: 20141111
  Transmission Date: 20150529
  Serious: No
  Sender: FDA-Public Use
  Company Number: None

PATIENT
  Age: 55 Year
  Sex: Female
  Weight: 53.52 kg

DRUGS (1)
  1. ASPERCREME HEAT [Suspect]
     Active Substance: MENTHOL

REACTIONS (3)
  - Burning sensation [None]
  - Panic attack [None]
  - Erythema [None]

NARRATIVE: CASE EVENT DATE: 20141107
